FAERS Safety Report 5705348-6 (Version None)
Quarter: 2008Q2

REPORT INFORMATION
  Report Type: 
  Country: None (occurrence: None)
  Receive Date: 20080410
  Receipt Date: 20080401
  Transmission Date: 20081010
  Serious: Yes (Life-Threatening, Hospitalization, Other)
  Sender: FDA-Public Use
  Company Number: 2008S1005522

PATIENT
  Age: 11 Year
  Sex: Female

DRUGS (6)
  1. AZATHIOPRINE [Suspect]
     Indication: CROHN'S DISEASE
     Dosage: 100 MG; ORAL
     Dates: start: 20020101, end: 20070101
  2. REMICADE [Suspect]
     Indication: CROHN'S DISEASE
     Dosage: 165 MG; INTRAVENOUS
     Route: 042
     Dates: start: 20031201, end: 20041001
  3. ADCAL-D3 (LEKOVIT CA) (CON.) [Concomitant]
  4. CEFUROXIME (CEFUROXIME) (CON.) [Concomitant]
  5. DOMPERIDONE (DOMPERIDONE) (CON.) [Concomitant]
  6. METRONIDAZOLE (METRONIDAZOLE) (CON.) [Concomitant]

REACTIONS (8)
  - BACK PAIN [None]
  - CENTRAL LINE INFECTION [None]
  - LISTERIOSIS [None]
  - LYMPHOPENIA [None]
  - MENINGITIS LISTERIA [None]
  - MENINGITIS TUBERCULOUS [None]
  - MENINGITIS VIRAL [None]
  - NAUSEA [None]
